FAERS Safety Report 7881183-8 (Version None)
Quarter: 2011Q4

REPORT INFORMATION
  Report Type: 
  Country: None (occurrence: None)
  Receive Date: 20111101
  Receipt Date: 20110524
  Transmission Date: 20120403
  Serious: No
  Sender: FDA-Public Use
  Company Number: US-AMGEN-USASP2011017161

PATIENT
  Age: 46 Year
  Sex: Female

DRUGS (3)
  1. ENBREL [Suspect]
     Indication: RHEUMATOID ARTHRITIS
     Dosage: 50 MG, QWK
     Dates: start: 20110308
  2. ENBREL [Suspect]
     Dosage: 50 MG, QWK
  3. METHOTREXATE [Concomitant]

REACTIONS (12)
  - INJECTION SITE SWELLING [None]
  - BONE PAIN [None]
  - EYE SWELLING [None]
  - DIARRHOEA [None]
  - PAIN IN EXTREMITY [None]
  - OEDEMA PERIPHERAL [None]
  - DRY SKIN [None]
  - JOINT STIFFNESS [None]
  - ARTHRALGIA [None]
  - RHEUMATOID ARTHRITIS [None]
  - RASH [None]
  - DIZZINESS [None]
